FAERS Safety Report 7093504-7 (Version None)
Quarter: 2010Q4

REPORT INFORMATION
  Report Type: 
  Country: None (occurrence: None)
  Receive Date: 20101110
  Receipt Date: 20090701
  Transmission Date: 20110411
  Serious: No
  Sender: FDA-Public Use
  Company Number: US-KINGPHARMUSA00001-K200900784

PATIENT
  Sex: Female
  Weight: 54.422 kg

DRUGS (2)
  1. EPIPEN JR. [Suspect]
     Dosage: 0.15 MG, SINGLE
     Route: 030
     Dates: start: 20090618, end: 20090618
  2. ALBUTEROL [Concomitant]
     Indication: ASTHMA
     Dosage: UNK

REACTIONS (1)
  - ACCIDENTAL EXPOSURE [None]
